FAERS Safety Report 10794237 (Version 1)
Quarter: 2015Q1

REPORT INFORMATION
  Report Type: Spontaneous
  Country: JP (occurrence: JP)
  Receive Date: 20150213
  Receipt Date: 20150213
  Transmission Date: 20150721
  Serious: Yes (Other)
  Sender: FDA-Public Use
  Company Number: JP-NAPPMUNDI-GBR-2014-0021412

PATIENT
  Age: 80 Year

DRUGS (1)
  1. OXYCODONE HCL INJECTABLE [Suspect]
     Active Substance: OXYCODONE HYDROCHLORIDE
     Indication: GALLBLADDER PAIN
     Dosage: 12 MG, DAILY
     Route: 058
     Dates: start: 20140822

REACTIONS (3)
  - Off label use [Unknown]
  - Delirium [Unknown]
  - Somnolence [Unknown]

NARRATIVE: CASE EVENT DATE: 201409
